FAERS Safety Report 19195239 (Version 1)
Quarter: 2021Q2

REPORT INFORMATION
  Report Type: Spontaneous
  Country: US (occurrence: US)
  Receive Date: 20210429
  Receipt Date: 20210429
  Transmission Date: 20210717
  Serious: Yes (Hospitalization)
  Sender: FDA-Public Use
  Company Number: None

PATIENT
  Sex: Female

DRUGS (1)
  1. GLATIRAMER 40MG/ML SYR [Suspect]
     Active Substance: GLATIRAMER
     Indication: MULTIPLE SCLEROSIS
     Route: 058
     Dates: start: 20210223

REACTIONS (8)
  - Electrolyte imbalance [None]
  - Impaired quality of life [None]
  - Dialysis [None]
  - Wound infection [None]
  - Lymphoedema [None]
  - Impaired healing [None]
  - Dehydration [None]
  - Fatigue [None]
